FAERS Safety Report 5497983-8 (Version None)
Quarter: 2007Q4

REPORT INFORMATION
  Report Type: 
  Country: None (occurrence: None)
  Receive Date: 20071018
  Receipt Date: 20060905
  Transmission Date: 20080405
  Serious: Yes (Hospitalization, Other)
  Sender: FDA-Public Use
  Company Number: 2006107330

PATIENT
  Sex: Male
  Weight: 121.1104 kg

DRUGS (9)
  1. NEURONTIN [Suspect]
     Indication: NEUROPATHY
     Dosage: 300 MG (100 MG, 3 IN 1 D) ,
     Dates: start: 20050101
  2. KLOR-CON [Concomitant]
  3. LASIX [Concomitant]
  4. NITRO-BID [Concomitant]
  5. ISMO [Concomitant]
  6. KLONOPIN [Concomitant]
  7. ACTOS [Concomitant]
  8. MICARDIS [Concomitant]
  9. TOPROL-XL [Concomitant]

REACTIONS (5)
  - DRUG INEFFECTIVE [None]
  - HYPERTENSION [None]
  - INSOMNIA [None]
  - NAUSEA [None]
  - STOMACH DISCOMFORT [None]
